FAERS Safety Report 17855944 (Version 1)
Quarter: 2020Q2

REPORT INFORMATION
  Report Type: Spontaneous
  Country: US (occurrence: US)
  Receive Date: 20200603
  Receipt Date: 20200603
  Transmission Date: 20200714
  Serious: Yes (Other)
  Sender: FDA-Public Use
  Company Number: US-BTG-202000018

PATIENT
  Age: 54 Year
  Sex: Female
  Weight: 98 kg

DRUGS (4)
  1. BICARB [Concomitant]
     Active Substance: SODIUM BICARBONATE
     Indication: PRODUCT USED FOR UNKNOWN INDICATION
     Route: 065
  2. VORAXAZE [Suspect]
     Active Substance: GLUCARPIDASE
     Indication: TOXICITY TO VARIOUS AGENTS
     Dosage: 5000 UNITS (50 MG/KG/ ROUNDED TO CLOSEST VIAL SIZE) @ 23:29
     Route: 065
     Dates: start: 20200120
  3. LEUCOVORIN. [Suspect]
     Active Substance: LEUCOVORIN
     Indication: TOXICITY TO VARIOUS AGENTS
     Dosage: 200MG Q3 HOURS, BUT HELD 2 HOURS PRIOR AND 2 HOURS POST GLUCARPIDASE
     Route: 065
  4. METHOTREXATE. [Suspect]
     Active Substance: METHOTREXATE
     Indication: CENTRAL NERVOUS SYSTEM LYMPHOMA
     Route: 065
     Dates: start: 20200116

REACTIONS (1)
  - Laboratory test interference [Recovered/Resolved]

NARRATIVE: CASE EVENT DATE: 20200122
